FAERS Safety Report 12357164 (Version 3)
Quarter: 2016Q2

REPORT INFORMATION
  Report Type: Spontaneous
  Country: IT (occurrence: IT)
  Receive Date: 20160511
  Receipt Date: 20160613
  Transmission Date: 20160815
  Serious: Yes (Disabling)
  Sender: FDA-Public Use
  Company Number: PHHY2016IT064468

PATIENT
  Age: 31 Year
  Sex: Male

DRUGS (1)
  1. GILENYA [Suspect]
     Active Substance: FINGOLIMOD HYDROCHLORIDE
     Indication: MULTIPLE SCLEROSIS
     Dosage: 0.5 MG, QD
     Route: 048
     Dates: start: 201404

REACTIONS (3)
  - Testicular pain [Unknown]
  - Testicular seminoma (pure) stage I [Recovered/Resolved with Sequelae]
  - Testicular disorder [Unknown]

NARRATIVE: CASE EVENT DATE: 20151001
